FAERS Safety Report 11883121 (Version 1)
Quarter: 2015Q4

REPORT INFORMATION
  Report Type: Report from Study
  Country: US (occurrence: US)
  Receive Date: 20151231
  Receipt Date: 20151231
  Transmission Date: 20160305
  Serious: Yes (Hospitalization)
  Sender: FDA-Public Use
  Company Number: US-GILEAD-2015-0190000

PATIENT
  Sex: Male

DRUGS (1)
  1. SOFOSBUVIR [Suspect]
     Active Substance: SOFOSBUVIR
     Indication: HEPATITIS C
     Dosage: UNK
     Route: 065
     Dates: start: 2013, end: 2013

REACTIONS (5)
  - Dyspnoea [Unknown]
  - Pain [Unknown]
  - Food poisoning [Unknown]
  - Renal function test abnormal [Unknown]
  - Anaemia [Unknown]
